FAERS Safety Report 5489754-3 (Version None)
Quarter: 2007Q4

REPORT INFORMATION
  Report Type: 
  Country: None (occurrence: None)
  Receive Date: 20071018
  Receipt Date: 20060828
  Transmission Date: 20080405
  Serious: Yes (Other)
  Sender: FDA-Public Use
  Company Number: US-ASTRAZENECA-2006UW16272

PATIENT
  Age: 46 Year
  Sex: Male

DRUGS (5)
  1. MERREM [Suspect]
     Indication: NOSOCOMIAL INFECTION
     Route: 042
  2. MERREM [Suspect]
     Route: 042
  3. PROTONIX [Concomitant]
  4. HEART MEDICATIONS [Concomitant]
  5. HAART THERAPY [Concomitant]

REACTIONS (2)
  - CONVULSION [None]
  - ELECTROLYTE IMBALANCE [None]
